FAERS Safety Report 19716727 (Version 6)
Quarter: 2022Q2

REPORT INFORMATION
  Report Type: Report from Study
  Country: US (occurrence: US)
  Receive Date: 20210819
  Receipt Date: 20220616
  Transmission Date: 20220721
  Serious: Yes (Other)
  Sender: FDA-Public Use
  Company Number: NVSC2021US185274

PATIENT
  Sex: Male

DRUGS (2)
  1. ENTRESTO [Suspect]
     Active Substance: SACUBITRIL\VALSARTAN
     Indication: Cardiac failure
     Dosage: UNK UNK, BID
     Route: 048
  2. ENTRESTO [Suspect]
     Active Substance: SACUBITRIL\VALSARTAN
     Dosage: UNK
     Route: 048

REACTIONS (10)
  - COVID-19 [Recovering/Resolving]
  - Constipation [Not Recovered/Not Resolved]
  - Sneezing [Unknown]
  - Weight increased [Unknown]
  - Decreased activity [Recovering/Resolving]
  - Cough [Not Recovered/Not Resolved]
  - Dizziness postural [Not Recovered/Not Resolved]
  - Blood sodium decreased [Unknown]
  - Back pain [Unknown]
  - Product dose omission issue [Unknown]
